FAERS Safety Report 17584763 (Version 1)
Quarter: 2020Q1

REPORT INFORMATION
  Report Type: Spontaneous
  Country: US (occurrence: US)
  Receive Date: 20200324
  Receipt Date: 20200324
  Transmission Date: 20200409
  Serious: No
  Sender: FDA-Public Use
  Company Number: None

PATIENT
  Age: 59 Year
  Sex: Male

DRUGS (1)
  1. AMOXICILLIN/CLAVULANATE (AMOXICILLIN TRIHYDRATE 875MG/CLAVULANATE K 125MG TAB) [Suspect]
     Active Substance: AMOXICILLIN\CLAVULANATE POTASSIUM
     Indication: SINUSITIS
     Dosage: ?          OTHER DOSE:875/125MG;?
     Route: 048
     Dates: start: 20190318, end: 20190325

REACTIONS (1)
  - Clostridium difficile infection [None]

NARRATIVE: CASE EVENT DATE: 20190325
